FAERS Safety Report 6973456-8 (Version None)
Quarter: 2010Q3

REPORT INFORMATION
  Report Type: 
  Country: None (occurrence: None)
  Receive Date: 20100909
  Receipt Date: 20100901
  Transmission Date: 20110219
  Serious: Yes (Other)
  Sender: FDA-Public Use
  Company Number: US-PFIZER INC-2010110280

PATIENT
  Sex: Female

DRUGS (1)
  1. CHANTIX [Suspect]
     Dosage: UNK
     Dates: start: 20081101

REACTIONS (6)
  - ABNORMAL DREAMS [None]
  - ANXIETY [None]
  - DEPRESSION [None]
  - LOSS OF CONSCIOUSNESS [None]
  - MOOD SWINGS [None]
  - SUICIDAL IDEATION [None]
